FAERS Safety Report 24382963 (Version 1)
Quarter: 2024Q4

REPORT INFORMATION
  Report Type: Spontaneous
  Country: CN (occurrence: CN)
  Receive Date: 20241001
  Receipt Date: 20241001
  Transmission Date: 20250115
  Serious: Yes (Hospitalization)
  Sender: ROCHE
  Company Number: CN-ROCHE-10000094162

PATIENT
  Age: 52 Year
  Sex: Female
  Weight: 39.5 kg

DRUGS (1)
  1. ROZLYTREK [Suspect]
     Active Substance: ENTRECTINIB
     Indication: Lung adenocarcinoma
     Dosage: ACCORDING TO SOURCE DOCUMENTATION, DOSE CHANGED TO 600 MG.
     Route: 048
     Dates: start: 20240820

REACTIONS (1)
  - Hepatic function abnormal [Unknown]

NARRATIVE: CASE EVENT DATE: 20240826
